FAERS Safety Report 9791653 (Version 2)
Quarter: 2014Q1

REPORT INFORMATION
  Report Type: Spontaneous
  Country: US (occurrence: US)
  Receive Date: 20140102
  Receipt Date: 20140120
  Transmission Date: 20141002
  Serious: Yes (Death, Hospitalization, Other)
  Sender: FDA-Public Use
  Company Number: US-BAXTER-2013BAX053098

PATIENT
  Sex: Male

DRUGS (4)
  1. DIANEAL LOW CALCIUM [Suspect]
     Indication: PERITONEAL DIALYSIS
     Route: 033
     Dates: end: 20131224
  2. DIANEAL PD2 [Suspect]
     Indication: RENAL FAILURE CHRONIC
     Route: 033
     Dates: start: 2009, end: 20131224
  3. DIANEAL PD2 [Suspect]
     Indication: RENAL FAILURE CHRONIC
     Route: 033
     Dates: start: 2009, end: 20131224
  4. EXTRANEAL [Suspect]
     Indication: RENAL FAILURE CHRONIC
     Route: 033
     Dates: start: 2009, end: 20131224

REACTIONS (3)
  - Death [Fatal]
  - Convulsion [Unknown]
  - Cerebrovascular accident [Unknown]
